FAERS Safety Report 4898400-9 (Version None)
Quarter: 2006Q1

REPORT INFORMATION
  Report Type: 
  Country: None (occurrence: None)
  Receive Date: 20060201
  Receipt Date: 20060201
  Transmission Date: 20060701
  Serious: Yes (Other)
  Sender: FDA-Public Use
  Company Number: None

PATIENT
  Age: 71 Year
  Sex: Male
  Weight: 83.9154 kg

DRUGS (1)
  1. ANDRODERM [Suspect]
     Indication: OSTEOPOROSIS
     Dosage: 5 MG DAILY TRANSDERMAL
     Route: 062
     Dates: start: 20051115, end: 20060131

REACTIONS (2)
  - CIRCUMSTANCE OR INFORMATION CAPABLE OF LEADING TO MEDICATION ERROR [None]
  - PHARMACEUTICAL PRODUCT COMPLAINT [None]
